FAERS Safety Report 22334186 (Version 5)
Quarter: 2023Q4

REPORT INFORMATION
  Report Type: Spontaneous
  Country: GB (occurrence: GB)
  Receive Date: 20230517
  Receipt Date: 20231124
  Transmission Date: 20240110
  Serious: Yes (Hospitalization, Other)
  Sender: FDA-Public Use
  Company Number: GB-ROCHE-3180009

PATIENT
  Age: 59 Year
  Weight: 51 kg

DRUGS (10)
  1. LENALIDOMIDE [Suspect]
     Active Substance: LENALIDOMIDE
     Indication: Follicular lymphoma
     Dosage: 20 MILLIGRAM DAILY; 20 MILLIGRAM, QD, DURATION: 178 DAYS
     Route: 048
     Dates: start: 20220929, end: 20230326
  2. VINCRISTINE [Suspect]
     Active Substance: VINCRISTINE
     Indication: Follicular lymphoma
     Dosage: ON 17/JUN/2022, THE PATIENT RECEIVED LAST DOSE OF STUDY DRUG, DURATION: 218 DAYS
     Route: 065
     Dates: start: 20211111, end: 20220617
  3. VINCRISTINE [Suspect]
     Active Substance: VINCRISTINE
     Dosage: UNK
     Route: 065
     Dates: start: 20220617
  4. CYCLOPHOSPHAMIDE [Suspect]
     Active Substance: CYCLOPHOSPHAMIDE
     Indication: Follicular lymphoma
     Dosage: ON 17/JUN/2022, THE PATIENT RECEIVED LAST DOSE OF STUDY DRUG, DURATION: 218 DAYS
     Route: 065
     Dates: start: 20211111, end: 20220617
  5. CYCLOPHOSPHAMIDE [Suspect]
     Active Substance: CYCLOPHOSPHAMIDE
     Dosage: UNK
     Route: 065
     Dates: start: 20220617
  6. OBINUTUZUMAB [Suspect]
     Active Substance: OBINUTUZUMAB
     Indication: Follicular lymphoma
     Dosage: 1000 MG (EVERY 8 WEEKS), ON 17/JUN/2022, THE PATIENT RECEIVED LAST DOSE OF STUDY DRUG, DURATION: 218
     Route: 042
     Dates: start: 20211111, end: 20220617
  7. OBINUTUZUMAB [Suspect]
     Active Substance: OBINUTUZUMAB
     Dosage: 1000 MILLIGRAM, ONCE IN 8 WEEKS
     Route: 042
     Dates: start: 20230305
  8. PREDNISONE [Suspect]
     Active Substance: PREDNISONE
     Indication: Follicular lymphoma
     Dosage: ON 17/JUN/2022, THE PATIENT RECEIVED LAST DOSE OF STUDY DRUG, DURATION: 218 DAYS
     Route: 065
     Dates: start: 20211111, end: 20220617
  9. PIPERACILLIN SODIUM\TAZOBACTAM SODIUM [Concomitant]
     Active Substance: PIPERACILLIN SODIUM\TAZOBACTAM SODIUM
     Indication: Product used for unknown indication
     Dosage: 4.5 G(PERSISTENT 1 WEEK; START DATE: 27-MAR-2023)
     Route: 042
  10. PIPERACILLIN SODIUM\TAZOBACTAM SODIUM [Concomitant]
     Active Substance: PIPERACILLIN SODIUM\TAZOBACTAM SODIUM
     Dosage: 4.5 GRAM (INTRAVENOUS DRIP)
     Route: 042
     Dates: start: 20220820

REACTIONS (8)
  - Malaise [Unknown]
  - Lethargy [Unknown]
  - C-reactive protein increased [Unknown]
  - Neutropenia [Recovering/Resolving]
  - Neutropenic sepsis [Recovering/Resolving]
  - COVID-19 [Recovered/Resolved]
  - Pneumonia [Unknown]
  - Palpitations [Unknown]

NARRATIVE: CASE EVENT DATE: 20220820
